FAERS Safety Report 11719516 (Version 4)
Quarter: 2015Q4

REPORT INFORMATION
  Report Type: Spontaneous
  Country: US (occurrence: US)
  Receive Date: 20151110
  Receipt Date: 20151229
  Transmission Date: 20160304
  Serious: Yes (Hospitalization)
  Sender: FDA-Public Use
  Company Number: US-ACTELION-A-NJ2015-126788

PATIENT
  Age: 45 Year
  Sex: Female

DRUGS (3)
  1. ADCIRCA [Concomitant]
     Active Substance: TADALAFIL
     Dosage: 40 MG, UNK
  2. REMODULIN [Suspect]
     Active Substance: TREPROSTINIL
     Indication: PRODUCT USED FOR UNKNOWN INDICATION
     Dosage: 40 NG/KG, PER MIN
     Route: 065
  3. OPSUMIT [Suspect]
     Active Substance: MACITENTAN
     Indication: PULMONARY ARTERIAL HYPERTENSION
     Dosage: 10 MG, QD
     Route: 048
     Dates: start: 20151028

REACTIONS (7)
  - Rash [Recovered/Resolved]
  - Chest discomfort [Unknown]
  - Chest pain [Recovered/Resolved]
  - Pulmonary hypertension [Unknown]
  - Device malfunction [Unknown]
  - Catheter site pain [Unknown]
  - Dyspnoea [Recovered/Resolved]
